FAERS Safety Report 8592508 (Version 4)
Quarter: 2013Q3

REPORT INFORMATION
  Report Type: Spontaneous
  Country: US (occurrence: US)
  Receive Date: 20120601
  Receipt Date: 20130911
  Transmission Date: 20140515
  Serious: No
  Sender: FDA-Public Use
  Company Number: US-ASTRAZENECA-2012SE31255

PATIENT
  Age: 55 Year
  Sex: Female
  Weight: 62.6 kg

DRUGS (10)
  1. SYMBICORT PMDI [Suspect]
     Dosage: UNKNOWN
     Route: 055
  2. SEROQUEL [Suspect]
     Indication: POST-TRAUMATIC STRESS DISORDER
     Route: 048
     Dates: start: 2010
  3. SEROQUEL [Suspect]
     Indication: CENTRAL PAIN SYNDROME
     Route: 048
     Dates: start: 2010
  4. SEROQUEL [Suspect]
     Indication: SLEEP DISORDER
     Route: 048
     Dates: start: 2010
  5. SEROQUEL [Suspect]
     Indication: DEPRESSION
     Route: 048
     Dates: start: 2010
  6. SEROQUEL [Suspect]
     Indication: POST-TRAUMATIC STRESS DISORDER
     Route: 048
     Dates: start: 2013
  7. SEROQUEL [Suspect]
     Indication: CENTRAL PAIN SYNDROME
     Route: 048
     Dates: start: 2013
  8. SEROQUEL [Suspect]
     Indication: SLEEP DISORDER
     Route: 048
     Dates: start: 2013
  9. SEROQUEL [Suspect]
     Indication: DEPRESSION
     Route: 048
     Dates: start: 2013
  10. CELEXA [Concomitant]
     Indication: DEPRESSION

REACTIONS (6)
  - Insomnia [Unknown]
  - Crying [Unknown]
  - Depression [Unknown]
  - Sleep disorder [Unknown]
  - Off label use [Unknown]
  - Drug dose omission [Unknown]
